FAERS Safety Report 4713980-1 (Version None)
Quarter: 2005Q3

REPORT INFORMATION
  Report Type: 
  Country: None (occurrence: None)
  Receive Date: 20050713
  Receipt Date: 20050704
  Transmission Date: 20060218
  Serious: Yes (Death, Hospitalization)
  Sender: FDA-Public Use
  Company Number: A0400017A

PATIENT
  Age: 65 Year
  Sex: Male
  Weight: 79.8331 kg

DRUGS (4)
  1. ALBENZA [Suspect]
     Indication: ECHINOCOCCIASIS
     Dosage: 400 MG/TWICE PER DAY/ORAL
     Route: 048
     Dates: start: 20030207
  2. SPIRONOLACTONE [Concomitant]
  3. METOPROLOL [Concomitant]
  4. TAMSULOSIN HCL [Concomitant]

REACTIONS (6)
  - BRONCHOPNEUMONIA [None]
  - DIFFUSE ALVEOLAR DAMAGE [None]
  - KLEBSIELLA SEPSIS [None]
  - OESOPHAGEAL VARICES HAEMORRHAGE [None]
  - PANCYTOPENIA [None]
  - SEPTIC SHOCK [None]
